FAERS Safety Report 7864845-8 (Version None)
Quarter: 2011Q4

REPORT INFORMATION
  Report Type: 
  Country: None (occurrence: None)
  Receive Date: 20111028
  Receipt Date: 20100902
  Transmission Date: 20120403
  Serious: No
  Sender: FDA-Public Use
  Company Number: US-GLAXOSMITHKLINE-A0879251A

PATIENT
  Age: 23 Year
  Sex: Female
  Weight: 76 kg

DRUGS (5)
  1. ZYRTEC [Concomitant]
     Indication: RHINITIS ALLERGIC
     Route: 048
     Dates: start: 20100819
  2. FLONASE [Concomitant]
     Indication: RHINITIS ALLERGIC
     Route: 045
     Dates: start: 20100819
  3. ADVAIR DISKUS 100/50 [Suspect]
     Indication: ASTHMA
     Route: 055
     Dates: start: 20100819, end: 20100826
  4. ZANTAC [Concomitant]
     Indication: GASTROOESOPHAGEAL REFLUX DISEASE
     Route: 048
     Dates: start: 20100819
  5. VENTOLIN HFA [Concomitant]
     Indication: ASTHMA
     Route: 055
     Dates: start: 20100819

REACTIONS (5)
  - HEADACHE [None]
  - DYSPHONIA [None]
  - ARTHRALGIA [None]
  - SENSITIVITY OF TEETH [None]
  - TOOTHACHE [None]
